FAERS Safety Report 6678712-9 (Version None)
Quarter: 2010Q2

REPORT INFORMATION
  Report Type: 
  Country: None (occurrence: None)
  Receive Date: 20100413
  Receipt Date: 20100403
  Transmission Date: 20101027
  Serious: Yes (Hospitalization)
  Sender: FDA-Public Use
  Company Number: PHHO2010JP05132

PATIENT

DRUGS (3)
  1. BLINDED NO TREATMENT RECEIVED NOMED [Suspect]
     Indication: PARTIAL SEIZURES
     Dosage: DOUBLE BLIND
     Route: 048
     Dates: start: 20100108
  2. BLINDED OXCARBAZEPINE G-OXZE+ [Suspect]
     Indication: PARTIAL SEIZURES
     Dosage: DOUBLE BLIND
     Route: 048
     Dates: start: 20100108
  3. BLINDED PLACEBO COMP-PLA+ [Suspect]
     Indication: PARTIAL SEIZURES
     Dosage: DOUBLE BLIND
     Route: 048
     Dates: start: 20100108

REACTIONS (1)
  - DRUG ERUPTION [None]
